FAERS Safety Report 10780027 (Version 2)
Quarter: 2015Q1

REPORT INFORMATION
  Report Type: Spontaneous
  Country: US (occurrence: US)
  Receive Date: 20150210
  Receipt Date: 20150223
  Transmission Date: 20150721
  Serious: Yes (Death, Hospitalization)
  Sender: FDA-Public Use
  Company Number: US-JAZZ-2015-US-001776

PATIENT
  Age: 64 Year
  Sex: Male

DRUGS (14)
  1. SINGULAIR [Concomitant]
     Active Substance: MONTELUKAST SODIUM
  2. METOPROLOL [Concomitant]
     Active Substance: METOPROLOL
  3. FAZACLO [Suspect]
     Active Substance: CLOZAPINE
     Dosage: 300-900 MG, QD
     Route: 048
     Dates: start: 20100325, end: 20150202
  4. ASCORBIC ACID. [Concomitant]
     Active Substance: ASCORBIC ACID
  5. OMEPRAZOLE. [Concomitant]
     Active Substance: OMEPRAZOLE
  6. INSULIN [Concomitant]
     Active Substance: INSULIN NOS
  7. IPRATROPIUM BROMIDE. [Concomitant]
     Active Substance: IPRATROPIUM BROMIDE
  8. CIPRO [Concomitant]
     Active Substance: CIPROFLOXACIN HYDROCHLORIDE
  9. ATORVASTATIN CALCIUM. [Concomitant]
     Active Substance: ATORVASTATIN CALCIUM
  10. LEVALBUTEROL HCL [Concomitant]
     Active Substance: LEVALBUTEROL HYDROCHLORIDE
  11. METRONIDAZOLE. [Concomitant]
     Active Substance: METRONIDAZOLE
  12. ACETAMINOPHEN. [Concomitant]
     Active Substance: ACETAMINOPHEN
  13. LACTULOSE. [Concomitant]
     Active Substance: LACTULOSE
  14. FUROSEMIDE. [Concomitant]
     Active Substance: FUROSEMIDE

REACTIONS (2)
  - Acute respiratory failure [Fatal]
  - Small intestinal obstruction [Unknown]

NARRATIVE: CASE EVENT DATE: 20150124
